FAERS Safety Report 18794862 (Version 1)
Quarter: 2021Q1

REPORT INFORMATION
  Report Type: Report from Study
  Country: US (occurrence: US)
  Receive Date: 20210127
  Receipt Date: 20210127
  Transmission Date: 20210419
  Serious: Yes (Hospitalization)
  Sender: FDA-Public Use
  Company Number: US-TEVA-2021-US-1872048

PATIENT
  Age: 13 Year
  Sex: Female

DRUGS (2)
  1. LAMOTRIGINE. [Suspect]
     Active Substance: LAMOTRIGINE
     Indication: INTENTIONAL OVERDOSE
     Route: 048
  2. FLUOXETINE [Suspect]
     Active Substance: FLUOXETINE HYDROCHLORIDE
     Indication: INTENTIONAL OVERDOSE
     Route: 048

REACTIONS (8)
  - Toxicity to various agents [Recovered/Resolved]
  - Muscle rigidity [Recovered/Resolved]
  - Clonus [Recovered/Resolved]
  - Tremor [Recovered/Resolved]
  - Hyperreflexia [Recovered/Resolved]
  - Acidosis [Recovered/Resolved]
  - Hyperthermia [Recovered/Resolved]
  - Intentional overdose [Recovered/Resolved]
